FAERS Safety Report 8481867-7 (Version None)
Quarter: 2012Q3

REPORT INFORMATION
  Report Type: 
  Country: None (occurrence: None)
  Receive Date: 20120702
  Receipt Date: 20120625
  Transmission Date: 20120928
  Serious: No
  Sender: FDA-Public Use
  Company Number: US-PFIZER INC-2012117510

PATIENT
  Sex: Male

DRUGS (17)
  1. CEFEPIME [Concomitant]
     Dosage: UNK
  2. TYGACIL [Suspect]
     Indication: CHRONIC OBSTRUCTIVE PULMONARY DISEASE
  3. ASPIRIN [Concomitant]
     Dosage: UNK
  4. OMEPRAZOLE [Concomitant]
     Dosage: UNK
  5. POTASSIUM CHLORIDE [Concomitant]
     Dosage: UNK
  6. MUCOMYST [Concomitant]
     Dosage: UNK
  7. CELLCEPT [Concomitant]
     Dosage: UNK
  8. SPIRIVA [Concomitant]
     Dosage: UNK
  9. GUAIFENESIN [Concomitant]
     Dosage: UNK
  10. MUCINEX [Concomitant]
     Dosage: UNK
  11. ATENOLOL [Concomitant]
     Dosage: UNK
  12. TORSEMIDE [Concomitant]
     Dosage: UNK
  13. TYGACIL [Suspect]
     Indication: PNEUMONIA
     Dosage: 50 MG, 2X/DAY
     Route: 042
     Dates: start: 20120511, end: 20120514
  14. INSULIN [Concomitant]
     Dosage: UNK
  15. PREDNISONE [Concomitant]
     Dosage: UNK
  16. FENOFIBRATE [Concomitant]
     Dosage: UNK
  17. LEVAQUIN [Concomitant]

REACTIONS (2)
  - SPUTUM DISCOLOURED [None]
  - BLOOD GLUCOSE INCREASED [None]
